FAERS Safety Report 21615308 (Version 2)
Quarter: 2022Q4

REPORT INFORMATION
  Report Type: Spontaneous
  Country: US (occurrence: US)
  Receive Date: 20221118
  Receipt Date: 20221122
  Transmission Date: 20230112
  Serious: No
  Sender: FDA-Public Use
  Company Number: US-BAYER-2022A153296

PATIENT
  Age: 47 Year
  Sex: Female

DRUGS (1)
  1. CIPRO [Suspect]
     Active Substance: CIPROFLOXACIN HYDROCHLORIDE
     Dates: start: 20220429

REACTIONS (3)
  - Arthralgia [None]
  - Joint stiffness [None]
  - Ligament pain [None]

NARRATIVE: CASE EVENT DATE: 20220804
